FAERS Safety Report 7700693-7 (Version None)
Quarter: 2011Q3

REPORT INFORMATION
  Report Type: 
  Country: None (occurrence: None)
  Receive Date: 20110822
  Receipt Date: 20110810
  Transmission Date: 20111222
  Serious: Yes (Hospitalization, Other)
  Sender: FDA-Public Use
  Company Number: US-JNJFOC-20110505416

PATIENT
  Sex: Female
  Weight: 64.4 kg

DRUGS (13)
  1. PREDNISONE [Concomitant]
     Route: 048
  2. CIPROFLOXACIN [Suspect]
     Indication: ANTIBIOTIC THERAPY
  3. FLAGYL [Concomitant]
     Indication: ANTIBIOTIC THERAPY
  4. REMICADE [Suspect]
     Route: 042
     Dates: start: 20110523
  5. ANTIBIOTIC [Suspect]
     Indication: INFLAMMATORY BOWEL DISEASE
  6. TUBERCULIN NOS [Concomitant]
  7. REMICADE [Suspect]
     Route: 042
     Dates: start: 20110507
  8. DIPHENHYDRAMINE HCL [Concomitant]
  9. MESALAMINE [Suspect]
     Indication: PRODUCT USED FOR UNKNOWN INDICATION
  10. VITAMIN AND MINERAL PRENATAL SUPPLEMENT W/ FOLIC ACID CAP [Concomitant]
  11. REMICADE [Suspect]
     Indication: CROHN'S DISEASE
     Route: 042
     Dates: start: 20110427
  12. PREVACID [Concomitant]
  13. VITAMIN D [Concomitant]

REACTIONS (2)
  - DEHYDRATION [None]
  - CROHN'S DISEASE [None]
